FAERS Safety Report 8297677-X (Version None)
Quarter: 2012Q2

REPORT INFORMATION
  Report Type: 
  Country: None (occurrence: None)
  Receive Date: 20120419
  Receipt Date: 20120405
  Transmission Date: 20120825
  Serious: Yes (Other)
  Sender: FDA-Public Use
  Company Number: US-AMGEN-USASP2011062747

PATIENT
  Age: 54 Year
  Sex: Male

DRUGS (4)
  1. LASIX [Concomitant]
     Dosage: UNK
     Route: 048
  2. SPIRONOLACTONE [Concomitant]
     Dosage: UNK
     Route: 048
  3. ASPIRIN [Concomitant]
     Dosage: UNK
  4. ENBREL [Suspect]
     Indication: PSORIASIS
     Dosage: 50 MG, QWK
     Route: 058
     Dates: start: 20090501

REACTIONS (1)
  - POLYCYTHAEMIA VERA [None]
